FAERS Safety Report 6367686-6 (Version None)
Quarter: 2009Q3

REPORT INFORMATION
  Report Type: 
  Country: None (occurrence: None)
  Receive Date: 20090921
  Receipt Date: 20090915
  Transmission Date: 20100115
  Serious: Yes (Other)
  Sender: FDA-Public Use
  Company Number: US-JNJFOC-20090904928

PATIENT
  Sex: Female
  Weight: 81.65 kg

DRUGS (4)
  1. FENTANYL TRANSDERMAL SYSTEM [Suspect]
     Indication: BACK PAIN
     Dosage: EVERY 48 TO 72 HOURS
     Route: 062
  2. DILANTIN [Concomitant]
     Dosage: 5 CAPSULES OF 100 MG TO MAKE A DOSE OF 500 MG AT PM
     Route: 048
  3. DILANTIN [Concomitant]
     Indication: CONVULSION
     Dosage: 100 MG CAPSULES 4 TIMES AT AM TO MAKE A DOSE OF 400 MG
     Route: 048
  4. NEURONTIN [Concomitant]
     Indication: CONVULSION
     Route: 048

REACTIONS (8)
  - CONVULSION [None]
  - DRUG DISPENSING ERROR [None]
  - DRUG PRESCRIBING ERROR [None]
  - EXPIRED DRUG ADMINISTERED [None]
  - INAPPROPRIATE SCHEDULE OF DRUG ADMINISTRATION [None]
  - INTENTIONAL DRUG MISUSE [None]
  - NAUSEA [None]
  - PRODUCT QUALITY ISSUE [None]
